FAERS Safety Report 20312997 (Version 3)
Quarter: 2022Q1

REPORT INFORMATION
  Report Type: Spontaneous
  Country: DE (occurrence: DE)
  Receive Date: 20220108
  Receipt Date: 20220203
  Transmission Date: 20220423
  Serious: Yes (Other)
  Sender: FDA-Public Use
  Company Number: DE-009507513-2112DEU009387

PATIENT
  Age: 28 Year
  Sex: Female
  Weight: 95 kg

DRUGS (14)
  1. FLUCLOXACILLIN [Suspect]
     Active Substance: FLUCLOXACILLIN
     Indication: Candida sepsis
     Dosage: UNK
     Route: 065
  2. FLUCLOXACILLIN [Suspect]
     Active Substance: FLUCLOXACILLIN
     Dosage: 12 GRAM, ONCE A DAY, QD
     Route: 065
     Dates: start: 20200803, end: 20200811
  3. FLUCONAZOLE [Suspect]
     Active Substance: FLUCONAZOLE
     Indication: Candida sepsis
     Dosage: UNK
     Route: 065
  4. FLUCONAZOLE [Suspect]
     Active Substance: FLUCONAZOLE
     Dosage: UNK
     Route: 065
     Dates: start: 20200720, end: 20200726
  5. MEROPENEM [Suspect]
     Active Substance: MEROPENEM
     Indication: Candida sepsis
     Dosage: UNK
     Route: 065
  6. MEROPENEM [Suspect]
     Active Substance: MEROPENEM
     Dosage: 2 GRAM, 1 TOTAL, ONCE
     Route: 065
     Dates: start: 20200722, end: 20200722
  7. MEROPENEM [Suspect]
     Active Substance: MEROPENEM
     Dosage: 6 GRAM, ONCE A DAY (2 GRAM, TID)
     Route: 065
     Dates: start: 20200723, end: 20200801
  8. PIPERACILLIN AND TAZOBACTAM [Suspect]
     Active Substance: PIPERACILLIN SODIUM\TAZOBACTAM SODIUM
     Indication: Candida sepsis
     Dosage: UNK
     Route: 065
  9. PIPERACILLIN AND TAZOBACTAM [Suspect]
     Active Substance: PIPERACILLIN SODIUM\TAZOBACTAM SODIUM
     Indication: Antibiotic therapy
     Dosage: UNK
     Route: 065
     Dates: start: 20200805, end: 20200811
  10. PIPERACILLIN AND TAZOBACTAM [Suspect]
     Active Substance: PIPERACILLIN SODIUM\TAZOBACTAM SODIUM
     Dosage: UNK
     Route: 065
     Dates: start: 20200720, end: 20200822
  11. CASPOFUNGIN ACETATE [Suspect]
     Active Substance: CASPOFUNGIN ACETATE
     Indication: Candida sepsis
     Dosage: UNK
     Route: 065
  12. CASPOFUNGIN ACETATE [Suspect]
     Active Substance: CASPOFUNGIN ACETATE
     Dosage: 70 MILLIGRAM, ONCE A DAY QD
     Route: 065
     Dates: start: 20200727, end: 20200811
  13. NOREPINEPHRINE [Concomitant]
     Active Substance: NOREPINEPHRINE
     Indication: Life support
     Dosage: 0.25 MICROGRAM PER KILOGRAM AND MINUTE
     Route: 065
     Dates: start: 20200720
  14. INSULIN NOS [Suspect]
     Active Substance: INSULIN NOS
     Indication: Type 1 diabetes mellitus
     Dosage: UNK
     Route: 065
     Dates: start: 20200720

REACTIONS (2)
  - Candida sepsis [Not Recovered/Not Resolved]
  - Drug ineffective [Unknown]

NARRATIVE: CASE EVENT DATE: 20200727
